FAERS Safety Report 4290037-8 (Version None)
Quarter: 2004Q1

REPORT INFORMATION
  Report Type: 
  Country: None (occurrence: None)
  Receive Date: 20040209
  Receipt Date: 20040128
  Transmission Date: 20041129
  Serious: Yes (Death, Hospitalization, Other)
  Sender: FDA-Public Use
  Company Number: 2004-01-1847

PATIENT
  Age: 73 Year
  Sex: Female
  Weight: 75.2971 kg

DRUGS (12)
  1. TEMODAR [Suspect]
     Indication: METASTATIC MALIGNANT MELANOMA
     Dosage: 345 MG QDX5/28 ORAL
     Route: 048
     Dates: start: 20040101, end: 20040105
  2. THALIDOMIDE CAPSULES [Suspect]
     Indication: METASTATIC MALIGNANT MELANOMA
     Dosage: 200 MG QD X 28 ORAL
     Route: 048
     Dates: start: 20040101, end: 20040119
  3. COUMADIN [Suspect]
     Dosage: 2MG ORAL
     Route: 048
  4. ASPIRIN [Suspect]
     Dosage: 325 MG QD ORAL
     Route: 048
  5. COREG [Concomitant]
  6. MAGNESIUM OXIDE TABLETS 400 MG [Concomitant]
  7. LASIX TABLETS 40 MG [Concomitant]
  8. LOTREL TABLETS [Concomitant]
  9. CORDARONE TABLETS 200 MG [Concomitant]
  10. PREVACID CAPSULES [Concomitant]
  11. ZOCOR [Concomitant]
  12. TYLENOL EXTRA STRENGTH TABLETS [Concomitant]

REACTIONS (9)
  - ASTHENIA [None]
  - FALL [None]
  - HAEMOGLOBIN DECREASED [None]
  - HAEMORRHAGE [None]
  - PLATELET COUNT DECREASED [None]
  - PROTHROMBIN TIME PROLONGED [None]
  - RESPIRATORY DISTRESS [None]
  - RESPIRATORY FAILURE [None]
  - WHITE BLOOD CELL COUNT DECREASED [None]
